FAERS Safety Report 16744274 (Version 1)
Quarter: 2019Q3

REPORT INFORMATION
  Report Type: Spontaneous
  Country: DE (occurrence: DE)
  Receive Date: 20190827
  Receipt Date: 20190827
  Transmission Date: 20191005
  Serious: Yes (Death, Hospitalization)
  Sender: FDA-Public Use
  Company Number: PHHY2019DE197741

PATIENT
  Sex: Female

DRUGS (1)
  1. EXJADE [Suspect]
     Active Substance: DEFERASIROX
     Indication: PRODUCT USED FOR UNKNOWN INDICATION
     Dosage: 2000 MG, QD
     Route: 065

REACTIONS (9)
  - Proteinuria [Unknown]
  - Multiple organ dysfunction syndrome [Fatal]
  - C-reactive protein increased [Unknown]
  - Infection [Unknown]
  - Serum ferritin increased [Unknown]
  - White blood cell count increased [Unknown]
  - Diabetes mellitus [Unknown]
  - Acute kidney injury [Unknown]
  - Cardiac failure [Fatal]
